FAERS Safety Report 7413785-7 (Version None)
Quarter: 2011Q2

REPORT INFORMATION
  Report Type: 
  Country: None (occurrence: None)
  Receive Date: 20110413
  Receipt Date: 20110329
  Transmission Date: 20111010
  Serious: Yes (Hospitalization)
  Sender: FDA-Public Use
  Company Number: JP-AMGEN-JPNCT2011001527

PATIENT
  Age: 69 Year
  Sex: Male
  Weight: 59 kg

DRUGS (15)
  1. PANITUMUMAB [Suspect]
     Dosage: 6 MG/KG, Q2WK
     Route: 041
     Dates: start: 20101102, end: 20101207
  2. CETUXIMAB [Concomitant]
     Indication: COLORECTAL CANCER
     Dosage: UNK
     Route: 041
     Dates: start: 20091201, end: 20100801
  3. METHYCOBAL [Concomitant]
     Indication: NEUROPATHY PERIPHERAL
     Route: 048
     Dates: start: 20070425, end: 20101005
  4. PANITUMUMAB [Suspect]
     Indication: COLORECTAL CANCER
     Dosage: 6 MG/KG, Q2WK
     Route: 041
     Dates: start: 20100824, end: 20100921
  5. LOBU [Concomitant]
     Indication: CANCER PAIN
     Route: 048
     Dates: start: 20101019
  6. KOBALNON [Concomitant]
     Indication: GASTRITIS
     Route: 048
     Dates: start: 20081015
  7. ANTIHISTAMINES [Concomitant]
     Indication: PROPHYLAXIS
     Dosage: UNK
     Route: 065
  8. CORTICOSTEROIDS [Concomitant]
     Indication: PROPHYLAXIS
     Dosage: UNK
     Route: 065
  9. AMLODIPINE [Concomitant]
     Indication: HYPERTENSION
     Route: 048
     Dates: start: 20060328
  10. LAC B [Concomitant]
     Indication: CONSTIPATION PROPHYLAXIS
     Route: 048
     Dates: start: 20040818
  11. GASCON [Concomitant]
     Indication: CONSTIPATION
  12. PURSENNID [Concomitant]
     Indication: CONSTIPATION
     Route: 048
     Dates: start: 20040922
  13. LANSOPRAZOLE [Concomitant]
     Route: 048
     Dates: start: 20101019, end: 20101207
  14. GASCON [Concomitant]
     Indication: CONSTIPATION PROPHYLAXIS
     Route: 048
     Dates: start: 20040818
  15. VOWLO [Concomitant]
     Indication: PROPHYLAXIS
     Route: 049
     Dates: start: 20091229, end: 20110118

REACTIONS (7)
  - PRURITUS [None]
  - BLOOD MAGNESIUM DECREASED [None]
  - LOWER GASTROINTESTINAL HAEMORRHAGE [None]
  - MYOCARDIAL INFARCTION [None]
  - PARONYCHIA [None]
  - DERMATITIS ACNEIFORM [None]
  - BLOOD CALCIUM DECREASED [None]
